FAERS Safety Report 16298578 (Version 1)
Quarter: 2019Q2

REPORT INFORMATION
  Report Type: Spontaneous
  Country: US (occurrence: US)
  Receive Date: 20190510
  Receipt Date: 20190510
  Transmission Date: 20190711
  Serious: Yes (Other)
  Sender: FDA-Public Use
  Company Number: US-SA-2019SA125816

PATIENT

DRUGS (1)
  1. CORTIZONE 10 [Suspect]
     Active Substance: HYDROCORTISONE
     Dosage: UNK, UNK

REACTIONS (7)
  - Skin exfoliation [Unknown]
  - Alopecia [Unknown]
  - Steroid withdrawal syndrome [Unknown]
  - Skin burning sensation [Unknown]
  - Drug dependence [Unknown]
  - Red man syndrome [Unknown]
  - Discharge [Unknown]
